FAERS Safety Report 8385615 (Version 2)
Quarter: 2013Q2

REPORT INFORMATION
  Report Type: Spontaneous
  Country: US (occurrence: None)
  Receive Date: 20111221
  Receipt Date: 20121227
  Transmission Date: 20140414
  Serious: Yes (Life-Threatening, Hospitalization, Other)
  Sender: FDA-Public Use
  Company Number: PHEH2011US03048

PATIENT
  Age: 21 Year
  Sex: Female
  Weight: 112 kg

DRUGS (6)
  1. EXJADE [Suspect]
     Indication: SICKLE CELL ANAEMIA WITH CRISIS
     Route: 048
     Dates: start: 20110208
  2. EXJADE [Suspect]
     Indication: SICKLE CELL ANAEMIA
     Route: 048
     Dates: start: 20110208
  3. LOTENSIN [Concomitant]
  4. MS CONTIN [Concomitant]
  5. PERCOCET [Concomitant]
  6. HYDROXYUREA [Concomitant]

REACTIONS (2)
  - SICKLE CELL ANAEMIA WITH CRISIS [None]
  - CONDITION AGGRAVATED [None]
